FAERS Safety Report 14635996 (Version 1)
Quarter: 2018Q1

REPORT INFORMATION
  Report Type: Report from Study
  Country: US (occurrence: US)
  Receive Date: 20180314
  Receipt Date: 20180314
  Transmission Date: 20180509
  Serious: No
  Sender: FDA-Public Use
  Company Number: US-ALEXION PHARMACEUTICALS INC.-A201802359

PATIENT
  Sex: Male

DRUGS (2)
  1. SOLIRIS [Suspect]
     Active Substance: ECULIZUMAB
     Indication: ATYPICAL HAEMOLYTIC URAEMIC SYNDROME
     Dosage: 1200 MG, Q2W
     Route: 042
     Dates: start: 20130621, end: 20180215
  2. MENINGOCOCCAL POLYSACCHARIDE VACCINE A NOS [Suspect]
     Active Substance: MENINGOCOCCAL POLYSACCHARIDE VACCINE A\NEISSERIA MENINGITIDIS GROUP A CAPSULAR POLYSACCHARIDE ANTIGEN
     Indication: IMMUNISATION
     Dosage: UNK
     Route: 065
     Dates: start: 20180223

REACTIONS (5)
  - Injection site swelling [Recovered/Resolved]
  - Tonsillar hypertrophy [Not Recovered/Not Resolved]
  - Tonsillar exudate [Unknown]
  - Oropharyngeal pain [Not Recovered/Not Resolved]
  - Tonsillar erythema [Not Recovered/Not Resolved]

NARRATIVE: CASE EVENT DATE: 20180223
